FAERS Safety Report 12115452 (Version 4)
Quarter: 2017Q2

REPORT INFORMATION
  Report Type: Report from Study
  Country: US (occurrence: US)
  Receive Date: 20160225
  Receipt Date: 20170519
  Transmission Date: 20170829
  Serious: Yes (Congenital Anomaly, Other)
  Sender: FDA-Public Use
  Company Number: US-UCBSA-2016006589

PATIENT
  Age: 0 Year
  Sex: Male
  Weight: 2.5 kg

DRUGS (20)
  1. BACTRIM [Concomitant]
     Active Substance: SULFAMETHOXAZOLE\TRIMETHOPRIM
     Indication: KIDNEY INFECTION
     Dosage: 2 DF, ONCE DAILY (QD)
     Route: 064
     Dates: start: 20140328, end: 20140407
  2. CLARITIN [Concomitant]
     Active Substance: LORATADINE
     Indication: SINUS HEADACHE
     Dosage: 1 DF, ONCE DAILY (QD)
     Route: 064
     Dates: start: 20140712, end: 20140712
  3. CERTOLIZUMAB PEGOL RA [Suspect]
     Active Substance: CERTOLIZUMAB PEGOL
     Dosage: 200 MG, EV 2 WEEKS(QOW)
     Route: 064
     Dates: start: 2014, end: 20141018
  4. CHILDREN CLARITIN ALLERGY [Concomitant]
     Active Substance: LORATADINE
     Indication: PRODUCT USED FOR UNKNOWN INDICATION
     Dosage: 1 DF, ONCE DAILY (QD)
     Route: 064
     Dates: start: 20140328, end: 20140330
  5. ARISTOSPAN [Concomitant]
     Active Substance: TRIAMCINOLONE HEXACETONIDE
     Indication: PRODUCT USED FOR UNKNOWN INDICATION
     Dosage: 40 MG, ONCE DAILY (QD)
     Dates: start: 20140417, end: 20140417
  6. LIDOCAINE. [Concomitant]
     Active Substance: LIDOCAINE
     Dosage: 7 ML, ONCE DAILY (QD)
     Dates: start: 20140428, end: 201404
  7. ARISTOSPAN [Concomitant]
     Active Substance: TRIAMCINOLONE HEXACETONIDE
     Dosage: 40 MG, ONCE DAILY (QD)
     Dates: start: 20140428, end: 20140428
  8. LORATADINE. [Concomitant]
     Active Substance: LORATADINE
     Indication: PRODUCT USED FOR UNKNOWN INDICATION
     Dosage: 1 DF, ONCE DAILY (QD)
     Route: 064
     Dates: start: 20140913, end: 20140914
  9. PHENERGAN [Concomitant]
     Active Substance: PROMETHAZINE HYDROCHLORIDE
     Indication: NAUSEA
     Dosage: 2 DF, ONCE DAILY (QD)
     Route: 064
     Dates: start: 20140714, end: 20140714
  10. ONE-A-DAY NOS [Concomitant]
     Active Substance: MINERALS\VITAMINS
     Indication: PRODUCT USED FOR UNKNOWN INDICATION
     Dosage: 1 DF, ONCE DAILY (QD)
     Route: 064
     Dates: start: 20140221, end: 20140516
  11. LORATADINE\PSEUDOEPHEDRINE SULFATE [Concomitant]
     Active Substance: LORATADINE\PSEUDOEPHEDRINE SULFATE
     Indication: HYPERSENSITIVITY
     Dosage: 1 DF, ONCE DAILY (QD)
     Route: 064
     Dates: start: 20140416, end: 20140416
  12. CERTOLIZUMAB PEGOL RA [Suspect]
     Active Substance: CERTOLIZUMAB PEGOL
     Indication: RHEUMATOID ARTHRITIS
     Dosage: 200 MG, 1.3 TIMES PER MONTH
     Route: 064
     Dates: start: 20140429, end: 2014
  13. PHENERGAN [Concomitant]
     Active Substance: PROMETHAZINE HYDROCHLORIDE
     Dosage: 1 DF, TOTAL
     Route: 064
     Dates: start: 20140919, end: 20140925
  14. DHA [Concomitant]
     Active Substance: DIETARY SUPPLEMENT
     Indication: PRODUCT USED FOR UNKNOWN INDICATION
     Dosage: 1 DF, ONCE DAILY (QD)
     Route: 064
     Dates: start: 20140904, end: 20141106
  15. PREDNISONE. [Concomitant]
     Active Substance: PREDNISONE
     Indication: ARTHRITIS REACTIVE
     Dosage: 10 MG, ONCE DAILY (QD)
     Route: 064
     Dates: start: 20140915, end: 20140919
  16. TYLENOL [Concomitant]
     Active Substance: ACETAMINOPHEN
     Indication: HEADACHE
     Dosage: 2 DF, ONCE DAILY (QD)
     Route: 064
     Dates: start: 20140327, end: 20140327
  17. NASACORT [Concomitant]
     Active Substance: TRIAMCINOLONE ACETONIDE
     Indication: ALLERGIC SINUSITIS
     Dosage: UNK
     Route: 064
     Dates: start: 20140315, end: 20140318
  18. PREDNISONE. [Concomitant]
     Active Substance: PREDNISONE
     Dosage: 5 MG, ONCE DAILY (QD)
     Route: 064
     Dates: start: 20140920, end: 20140923
  19. TRAMADOL. [Concomitant]
     Active Substance: TRAMADOL
     Indication: PAIN
     Dosage: 1.5 DF, MONTHLY (QM)
     Route: 064
     Dates: start: 20140221, end: 20140322
  20. LIDOCAINE. [Concomitant]
     Active Substance: LIDOCAINE
     Indication: ASPIRATION
     Dosage: 7 ML, ONCE DAILY (QD)
     Dates: start: 20140418, end: 20140418

REACTIONS (4)
  - Vascular malformation [Unknown]
  - Haemangioma [Unknown]
  - Premature baby [Unknown]
  - Foetal exposure during pregnancy [Unknown]

NARRATIVE: CASE EVENT DATE: 20140429
